FAERS Safety Report 12777774 (Version 1)
Quarter: 2016Q3

REPORT INFORMATION
  Report Type: Spontaneous
  Country: US (occurrence: US)
  Receive Date: 20160924
  Receipt Date: 20160924
  Transmission Date: 20161109
  Serious: No
  Sender: FDA-Public Use
  Company Number: US-JAZZ-2016-US-010537

PATIENT
  Sex: Male

DRUGS (28)
  1. XYREM [Suspect]
     Active Substance: SODIUM OXYBATE
     Dosage: 4.5 G, BID
     Route: 048
     Dates: start: 201511
  2. ADDERALL XR [Concomitant]
     Active Substance: AMPHETAMINE ASPARTATE\AMPHETAMINE SULFATE\DEXTROAMPHETAMINE SACCHARATE\DEXTROAMPHETAMINE SULFATE
  3. ATIVAN [Concomitant]
     Active Substance: LORAZEPAM
  4. LUNESTA [Concomitant]
     Active Substance: ESZOPICLONE
  5. SONATA [Concomitant]
     Active Substance: ZALEPLON
  6. XYREM [Suspect]
     Active Substance: SODIUM OXYBATE
     Dosage: 3 G, BID
     Route: 048
     Dates: start: 201002, end: 201005
  7. XYREM [Suspect]
     Active Substance: SODIUM OXYBATE
     Dosage: 4.5 G, BID
     Route: 048
     Dates: start: 201005, end: 2014
  8. CLARITIN [Concomitant]
     Active Substance: LORATADINE
  9. MAXALT [Concomitant]
     Active Substance: RIZATRIPTAN BENZOATE
  10. VIMPAT [Concomitant]
     Active Substance: LACOSAMIDE
  11. IMITREX [Concomitant]
     Active Substance: SUMATRIPTAN SUCCINATE
  12. VOLTAREN [Concomitant]
     Active Substance: DICLOFENAC SODIUM
  13. XANAX [Concomitant]
     Active Substance: ALPRAZOLAM
  14. XYREM [Suspect]
     Active Substance: SODIUM OXYBATE
     Indication: NARCOLEPSY
     Dosage: 2.25 G, BID
     Route: 048
     Dates: start: 201001, end: 201002
  15. ATARAX [Concomitant]
     Active Substance: HYDROXYZINE\HYDROXYZINE HYDROCHLORIDE
  16. FLONASE [Concomitant]
     Active Substance: FLUTICASONE PROPIONATE
  17. EFFEXOR XR [Concomitant]
     Active Substance: VENLAFAXINE HYDROCHLORIDE
  18. LYRICA [Concomitant]
     Active Substance: PREGABALIN
  19. NICOTROL [Concomitant]
     Active Substance: NICOTINE
  20. TYLENOL WITH CODEINE [Concomitant]
     Active Substance: ACETAMINOPHEN\CODEINE PHOSPHATE
  21. PROTONIX DR [Concomitant]
  22. ROZEREM [Concomitant]
     Active Substance: RAMELTEON
  23. LORTAB [Concomitant]
     Active Substance: ACETAMINOPHEN\HYDROCODONE BITARTRATE
  24. ADDERALL [Concomitant]
     Active Substance: AMPHETAMINE ASPARTATE\AMPHETAMINE SULFATE\DEXTROAMPHETAMINE SACCHARATE\DEXTROAMPHETAMINE SULFATE
  25. FLECTOR [Concomitant]
     Active Substance: DICLOFENAC EPOLAMINE
  26. RELPAX [Concomitant]
     Active Substance: ELETRIPTAN HYDROBROMIDE
  27. ZANAFLEX [Concomitant]
     Active Substance: TIZANIDINE HYDROCHLORIDE
  28. CYMBALTA [Concomitant]
     Active Substance: DULOXETINE HYDROCHLORIDE

REACTIONS (2)
  - Pre-existing condition improved [Unknown]
  - Therapeutic response unexpected [Unknown]
